FAERS Safety Report 25251187 (Version 1)
Quarter: 2025Q2

REPORT INFORMATION
  Report Type: Other
  Country: US (occurrence: US)
  Receive Date: 20250429
  Receipt Date: 20250429
  Transmission Date: 20250717
  Serious: No
  Sender: TRAVERE THERAPEUTICS
  Company Number: US-TRAVERE-2025TVT00376

PATIENT
  Age: 41 Year
  Sex: Female

DRUGS (7)
  1. FILSPARI [Suspect]
     Active Substance: SPARSENTAN
     Indication: Chronic kidney disease
     Route: 048
     Dates: start: 20241218
  2. FILSPARI [Suspect]
     Active Substance: SPARSENTAN
     Indication: Hypertensive nephropathy
  3. FILSPARI [Suspect]
     Active Substance: SPARSENTAN
     Indication: Hypothyroidism
  4. FILSPARI [Suspect]
     Active Substance: SPARSENTAN
     Indication: Intervertebral disc degeneration
  5. FILSPARI [Suspect]
     Active Substance: SPARSENTAN
     Indication: Haematuria
  6. FILSPARI [Suspect]
     Active Substance: SPARSENTAN
     Indication: IgA nephropathy
  7. FILSPARI [Suspect]
     Active Substance: SPARSENTAN
     Indication: Hyperparathyroidism secondary

REACTIONS (2)
  - Pruritus [Recovering/Resolving]
  - Chronic inflammatory demyelinating polyradiculoneuropathy [Unknown]
